FAERS Safety Report 10332227 (Version 1)
Quarter: 2014Q3

REPORT INFORMATION
  Report Type: Spontaneous
  Country: FR (occurrence: FR)
  Receive Date: 20140722
  Receipt Date: 20140722
  Transmission Date: 20150326
  Serious: Yes (Life-Threatening, Hospitalization)
  Sender: FDA-Public Use
  Company Number: FR-BRISTOL-MYERS SQUIBB COMPANY-21215066

PATIENT
  Age: 44 Year
  Sex: Female

DRUGS (6)
  1. SEROPRAM [Concomitant]
     Active Substance: CITALOPRAM HYDROBROMIDE
  2. ALPRAZOLAM. [Concomitant]
     Active Substance: ALPRAZOLAM
  3. ABILIFY [Suspect]
     Active Substance: ARIPIPRAZOLE
     Indication: DEPRESSION
     Dosage: FREQUENCY: 1
     Route: 048
     Dates: start: 20130531, end: 20130630
  4. NOCTAMIDE [Concomitant]
     Active Substance: LORMETAZEPAM
  5. PRAXINOR [Concomitant]
  6. ESTRADIOL VALERATE. [Suspect]
     Active Substance: ESTRADIOL VALERATE
     Route: 048
     Dates: start: 2009

REACTIONS (2)
  - Pulmonary embolism [Unknown]
  - Pulmonary oedema [Unknown]

NARRATIVE: CASE EVENT DATE: 20130603
